FAERS Safety Report 9179485 (Version 10)
Quarter: 2013Q3

REPORT INFORMATION
  Report Type: Report from Study
  Country: CA (occurrence: CA)
  Receive Date: 20130321
  Receipt Date: 20130701
  Transmission Date: 20140515
  Serious: Yes (Other)
  Sender: FDA-Public Use
  Company Number: CA-ROCHE-1159384

PATIENT
  Age: 82 Year
  Sex: Female
  Weight: 70 kg

DRUGS (6)
  1. AVASTIN [Suspect]
     Indication: GLIOBLASTOMA
     Route: 042
     Dates: start: 20121107, end: 20130619
  2. AVASTIN [Suspect]
     Route: 042
     Dates: start: 20121120
  3. LIPITOR [Concomitant]
  4. PANTOLOC [Concomitant]
     Indication: BLOOD CHOLESTEROL INCREASED
  5. PLAVIX [Concomitant]
  6. REMERON [Concomitant]
     Route: 065

REACTIONS (17)
  - Neoplasm [Unknown]
  - Disease progression [Unknown]
  - Arthralgia [Unknown]
  - Chest pain [Unknown]
  - Urinary tract infection [Recovered/Resolved]
  - Blood pressure increased [Recovering/Resolving]
  - Nausea [Unknown]
  - Skin disorder [Recovering/Resolving]
  - Epistaxis [Recovered/Resolved]
  - Fatigue [Unknown]
  - Somnolence [Unknown]
  - General physical health deterioration [Not Recovered/Not Resolved]
  - Mobility decreased [Not Recovered/Not Resolved]
  - Muscular weakness [Not Recovered/Not Resolved]
  - Pain of skin [Unknown]
  - Neoplasm [Unknown]
  - Hyperaesthesia [Unknown]
